FAERS Safety Report 11424905 (Version 4)
Quarter: 2015Q4

REPORT INFORMATION
  Report Type: Report from Study
  Country: US (occurrence: US)
  Receive Date: 20150827
  Receipt Date: 20151014
  Transmission Date: 20160304
  Serious: No
  Sender: FDA-Public Use
  Company Number: PHEH2013US019033

PATIENT
  Sex: Female

DRUGS (1)
  1. CLOZARIL [Suspect]
     Active Substance: CLOZAPINE
     Indication: SCHIZOPHRENIA
     Dosage: 100 MG, UNK 3HS
     Route: 048
     Dates: start: 20070523

REACTIONS (4)
  - Granulocyte count increased [Not Recovered/Not Resolved]
  - Memory impairment [Unknown]
  - Neutrophil count increased [Recovered/Resolved]
  - Leukocytosis [Not Recovered/Not Resolved]
